FAERS Safety Report 8339588-7 (Version None)
Quarter: 2012Q2

REPORT INFORMATION
  Report Type: 
  Country: None (occurrence: None)
  Receive Date: 20120507
  Receipt Date: 20120502
  Transmission Date: 20120825
  Serious: Yes (Other)
  Sender: FDA-Public Use
  Company Number: PHEH2012US009278

PATIENT
  Sex: Female

DRUGS (3)
  1. LOSARTAN POTASSIUM [Concomitant]
     Indication: HYPERTENSION
     Dosage: 100 MG, DAILY
     Route: 048
  2. VALTURNA [Suspect]
     Indication: HYPERTENSION
     Dosage: (150/160 MG), DAILY
     Route: 048
     Dates: start: 20100701
  3. LOVASTATIN [Concomitant]
     Indication: BLOOD CHOLESTEROL ABNORMAL
     Dosage: 20 MG, TWICE A DAY
     Route: 048

REACTIONS (3)
  - RENAL IMPAIRMENT [None]
  - BLOOD POTASSIUM INCREASED [None]
  - TYPE 2 DIABETES MELLITUS [None]
